FAERS Safety Report 11950237 (Version 4)
Quarter: 2016Q3

REPORT INFORMATION
  Report Type: Spontaneous
  Country: US (occurrence: US)
  Receive Date: 20160126
  Receipt Date: 20160809
  Transmission Date: 20161109
  Serious: No
  Sender: FDA-Public Use
  Company Number: US-GE HEALTHCARE MEDICAL DIAGNOSTICS-PET1-PR-1601S-0001

PATIENT
  Age: 71 Year
  Sex: Male
  Weight: 75.3 kg

DRUGS (11)
  1. VITAMINS NOS [Concomitant]
     Active Substance: VITAMINS
     Dates: start: 20150520
  2. ASPIRIN. [Concomitant]
     Active Substance: ASPIRIN
     Dates: start: 20150520
  3. CALCIUM (UNSPECIFIED) [Concomitant]
     Active Substance: CALCIUM
     Dates: start: 20150520
  4. FLUTEMETAMOL [F18] INJECTION [Suspect]
     Active Substance: FLUTEMETAMOL F-18
     Indication: PRODUCT USED FOR UNKNOWN INDICATION
     Route: 042
     Dates: start: 20151124, end: 20151124
  5. CHOLECALCIFEROL [Concomitant]
     Active Substance: CHOLECALCIFEROL
     Dates: start: 20150520
  6. FLUOCINONIDE. [Concomitant]
     Active Substance: FLUOCINONIDE
     Dates: start: 20150520
  7. FLUTEMETAMOL [F18] INJECTION [Suspect]
     Active Substance: FLUTEMETAMOL F-18
     Indication: DIAGNOSTIC PROCEDURE
  8. METROGEL [Concomitant]
     Active Substance: METRONIDAZOLE
     Dates: start: 20150520
  9. MK-8931 [Concomitant]
     Active Substance: VERUBECESTAT
     Indication: PRODROMAL ALZHEIMER^S DISEASE
  10. ASCORBIC ACID. [Concomitant]
     Active Substance: ASCORBIC ACID
     Dates: start: 20150520
  11. ALEVE [Concomitant]
     Active Substance: NAPROXEN SODIUM
     Dates: start: 20150520

REACTIONS (2)
  - Overdose [Recovered/Resolved]
  - No adverse event [Recovered/Resolved]

NARRATIVE: CASE EVENT DATE: 20151124
